FAERS Safety Report 20155490 (Version 23)
Quarter: 2025Q3

REPORT INFORMATION
  Report Type: Report from Study
  Country: US (occurrence: US)
  Receive Date: 20211207
  Receipt Date: 20250905
  Transmission Date: 20251021
  Serious: Yes (Death, Hospitalization, Other)
  Sender: TAKEDA
  Company Number: US-TAKEDA-US202018978

PATIENT
  Age: 67 Year
  Sex: Male
  Weight: 61 kg

DRUGS (38)
  1. TEDUGLUTIDE [Suspect]
     Active Substance: TEDUGLUTIDE
     Indication: Short-bowel syndrome
     Dosage: 1.363 MILLIGRAM, QD
  2. TEDUGLUTIDE [Suspect]
     Active Substance: TEDUGLUTIDE
     Indication: Post procedural complication
     Dosage: 2.7 MILLIGRAM, QD
  3. TEDUGLUTIDE [Suspect]
     Active Substance: TEDUGLUTIDE
     Dosage: 0.32 MILLILITER, QD
  4. TEDUGLUTIDE [Suspect]
     Active Substance: TEDUGLUTIDE
     Dosage: 0.27 MILLILITER, QD
  5. TEDUGLUTIDE [Suspect]
     Active Substance: TEDUGLUTIDE
     Dosage: 0.27 MILLILITER, QD
  6. TEDUGLUTIDE [Suspect]
     Active Substance: TEDUGLUTIDE
     Dosage: 0.27 MILLILITER, QD
  7. TEDUGLUTIDE [Suspect]
     Active Substance: TEDUGLUTIDE
     Dosage: 0.27 MILLILITER, QD
  8. TEDUGLUTIDE [Suspect]
     Active Substance: TEDUGLUTIDE
     Dosage: 0.27 MILLILITER, QD
  9. TEDUGLUTIDE [Suspect]
     Active Substance: TEDUGLUTIDE
     Dosage: 0.27 MILLILITER, QD
  10. TEDUGLUTIDE [Suspect]
     Active Substance: TEDUGLUTIDE
     Dosage: 0.17 MILLILITER, QD
  11. TEDUGLUTIDE [Suspect]
     Active Substance: TEDUGLUTIDE
     Dosage: 1.7 MILLIGRAM, QD
  12. TEDUGLUTIDE [Suspect]
     Active Substance: TEDUGLUTIDE
     Dosage: 1.7 MILLIGRAM, QD
  13. TEDUGLUTIDE [Suspect]
     Active Substance: TEDUGLUTIDE
     Dosage: 0.17 MILLILITER, QD
  14. VITAMIN B12 [Concomitant]
     Active Substance: CYANOCOBALAMIN
  15. VALACYCLOVIR [Concomitant]
     Active Substance: VALACYCLOVIR HYDROCHLORIDE
  16. LOPERAMIDE [Concomitant]
     Active Substance: LOPERAMIDE
  17. VITAMIN C [Concomitant]
     Active Substance: ASCORBIC ACID
  18. .BETA.-HYDROXYISOVALERIC ACID\ARGININE\GLUTAMINE [Concomitant]
     Active Substance: .BETA.-HYDROXYISOVALERIC ACID\ARGININE\GLUTAMINE
  19. VITAMIN D3 [Concomitant]
     Active Substance: CHOLECALCIFEROL
  20. ASPIRIN [Concomitant]
     Active Substance: ASPIRIN
  21. GABAPENTIN [Concomitant]
     Active Substance: GABAPENTIN
  22. OCTREOTIDE ACETATE [Concomitant]
     Active Substance: OCTREOTIDE ACETATE
  23. CHOLESTYRAMINE LIGHT [Concomitant]
     Active Substance: CHOLESTYRAMINE
  24. DAPSONE [Concomitant]
     Active Substance: DAPSONE
  25. MIRTAZAPINE [Concomitant]
     Active Substance: MIRTAZAPINE
  26. SODIUM BICARBONATE [Concomitant]
     Active Substance: SODIUM BICARBONATE
  27. ARIPIPRAZOLE [Concomitant]
     Active Substance: ARIPIPRAZOLE
  28. JULUCA [Concomitant]
     Active Substance: DOLUTEGRAVIR SODIUM\RILPIVIRINE HYDROCHLORIDE
  29. TIVICAY [Concomitant]
     Active Substance: DOLUTEGRAVIR SODIUM
  30. ESOMEPRAZOLE MAGNESIUM [Concomitant]
     Active Substance: ESOMEPRAZOLE MAGNESIUM
  31. TAMSULOSIN [Concomitant]
     Active Substance: TAMSULOSIN
  32. EDURANT [Concomitant]
     Active Substance: RILPIVIRINE HYDROCHLORIDE
  33. HYDROCORTISONE [Concomitant]
     Active Substance: HYDROCORTISONE
  34. ACETAMINOPHEN [Concomitant]
     Active Substance: ACETAMINOPHEN
  35. POTASSIUM CHLORIDE [Concomitant]
     Active Substance: POTASSIUM CHLORIDE
  36. ZINC [Concomitant]
     Active Substance: ZINC
  37. TAMSULOSIN HYDROCHLORIDE [Concomitant]
     Active Substance: TAMSULOSIN HYDROCHLORIDE
  38. CHOLESTYRAMINE [Concomitant]
     Active Substance: CHOLESTYRAMINE

REACTIONS (26)
  - Death [Fatal]
  - Renal disorder [Unknown]
  - Gastrointestinal stoma output increased [Recovered/Resolved]
  - Short-bowel syndrome [Unknown]
  - Post procedural complication [Unknown]
  - Dehydration [Recovered/Resolved]
  - Hip fracture [Unknown]
  - Neoplasm malignant [Unknown]
  - Blood potassium increased [Recovering/Resolving]
  - Chest pain [Unknown]
  - Gastrointestinal disorder [Unknown]
  - Glomerular filtration rate abnormal [Unknown]
  - Gastrointestinal stoma complication [Unknown]
  - Stress [Unknown]
  - Fall [Unknown]
  - Cancer in remission [Unknown]
  - Peripheral swelling [Unknown]
  - Gait inability [Unknown]
  - Product distribution issue [Unknown]
  - Feeling abnormal [Unknown]
  - Insurance issue [Unknown]
  - Product use issue [Unknown]
  - Abnormal faeces [Unknown]
  - Product dose omission issue [Unknown]
  - Illness [Unknown]
  - Anxiety [Unknown]

NARRATIVE: CASE EVENT DATE: 20240105
